FAERS Safety Report 22248877 (Version 1)
Quarter: 2023Q2

REPORT INFORMATION
  Report Type: Spontaneous
  Country: US (occurrence: US)
  Receive Date: 20230425
  Receipt Date: 20230425
  Transmission Date: 20230722
  Serious: No
  Sender: FDA-Public Use
  Company Number: US-BAYER-2023A049853

PATIENT
  Age: 55 Year
  Sex: Female

DRUGS (1)
  1. ALEVE [Suspect]
     Active Substance: NAPROXEN SODIUM
     Indication: Headache
     Dosage: 2 DF
     Route: 048
     Dates: start: 20230409

REACTIONS (4)
  - Limb discomfort [Not Recovered/Not Resolved]
  - Sensitive skin [Not Recovered/Not Resolved]
  - Rash [Not Recovered/Not Resolved]
  - Limb discomfort [Not Recovered/Not Resolved]

NARRATIVE: CASE EVENT DATE: 20230409
